FAERS Safety Report 18480064 (Version 5)
Quarter: 2021Q2

REPORT INFORMATION
  Report Type: Spontaneous
  Country: AU (occurrence: AU)
  Receive Date: 20201109
  Receipt Date: 20210625
  Transmission Date: 20210717
  Serious: Yes (Hospitalization, Other)
  Sender: FDA-Public Use
  Company Number: AU-MYLANLABS-2020M1092420

PATIENT
  Age: 14 Year
  Sex: Female

DRUGS (3)
  1. CLOZARIL [Suspect]
     Active Substance: CLOZAPINE
     Dosage: 225 MILLIGRAM
     Route: 048
     Dates: end: 20171230
  2. CLOZARIL [Suspect]
     Active Substance: CLOZAPINE
     Indication: SCHIZOPHRENIA
     Dosage: UNK
     Route: 048
     Dates: start: 20171103
  3. MINIRIN [Concomitant]
     Active Substance: DESMOPRESSIN ACETATE
     Indication: ENURESIS
     Dosage: 400 MICROGRAM, PM

REACTIONS (7)
  - Neutropenia [Recovered/Resolved]
  - Akathisia [Unknown]
  - Epilepsy [Unknown]
  - Hospitalisation [Unknown]
  - Schizophrenia [Recovering/Resolving]
  - Persecutory delusion [Not Recovered/Not Resolved]
  - Catatonia [Unknown]

NARRATIVE: CASE EVENT DATE: 20171229
